FAERS Safety Report 23350526 (Version 1)
Quarter: 2023Q4

REPORT INFORMATION
  Report Type: Spontaneous
  Country: US (occurrence: None)
  Receive Date: 20231228
  Receipt Date: 20231228
  Transmission Date: 20240110
  Serious: Yes (Other)
  Sender: FDA-Public Use
  Company Number: None

PATIENT
  Age: 63 Year
  Sex: Female
  Weight: 81 kg

DRUGS (23)
  1. JARDIANCE [Suspect]
     Active Substance: EMPAGLIFLOZIN
     Indication: Blood glucose increased
     Dosage: OTHER QUANTITY : 30 TABLET(S);?FREQUENCY : TWICE A DAY;?
     Route: 048
     Dates: start: 20230503, end: 20230820
  2. DEVICE [Concomitant]
     Active Substance: DEVICE
  3. MODAFINIL [Concomitant]
     Active Substance: MODAFINIL
  4. FENOFIBRATE [Concomitant]
     Active Substance: FENOFIBRATE
  5. ATENOLOL [Concomitant]
     Active Substance: ATENOLOL
  6. POTASSIUM [Concomitant]
     Active Substance: POTASSIUM
  7. LEVOTHYROXINE [Concomitant]
     Active Substance: LEVOTHYROXINE
  8. WARFARIN [Concomitant]
     Active Substance: WARFARIN
  9. PRAMIPEXOLE [Concomitant]
     Active Substance: PRAMIPEXOLE
  10. TIKOSYN [Concomitant]
     Active Substance: DOFETILIDE
  11. COLCHICINE [Concomitant]
     Active Substance: COLCHICINE
  12. Allorpurinol [Concomitant]
  13. FAMOTIDINE [Concomitant]
     Active Substance: FAMOTIDINE
  14. Ragland (metoclopramide) [Concomitant]
  15. ALBUTEROL [Concomitant]
     Active Substance: ALBUTEROL
  16. Q -10 [Concomitant]
  17. VITAMIN D3 [Concomitant]
     Active Substance: CHOLECALCIFEROL
  18. VITAMIN B12 [Concomitant]
     Active Substance: CYANOCOBALAMIN
  19. FLAXSEED [Concomitant]
     Active Substance: FLAX SEED
  20. MAGNESIUM [Concomitant]
     Active Substance: MAGNESIUM
  21. POTASSIUM [Concomitant]
     Active Substance: POTASSIUM
  22. DIETARY SUPPLEMENT\HERBALS\MILK THISTLE [Concomitant]
     Active Substance: MILK THISTLE
  23. IRON [Concomitant]
     Active Substance: IRON

REACTIONS (5)
  - Dizziness [None]
  - Hypotension [None]
  - Weight decreased [None]
  - Blood glucose decreased [None]
  - Presyncope [None]

NARRATIVE: CASE EVENT DATE: 20230821
